FAERS Safety Report 7728662-1 (Version None)
Quarter: 2011Q3

REPORT INFORMATION
  Report Type: 
  Country: None (occurrence: None)
  Receive Date: 20110906
  Receipt Date: 20110824
  Transmission Date: 20111222
  Serious: Yes (Hospitalization, Other)
  Sender: FDA-Public Use
  Company Number: JP-JNJFOC-20110310572

PATIENT
  Sex: Male
  Weight: 65 kg

DRUGS (14)
  1. CELESTAMINE TAB [Suspect]
     Indication: RASH
     Route: 048
     Dates: start: 20100118, end: 20100131
  2. ALLEGRA [Concomitant]
     Indication: RASH
     Route: 048
     Dates: start: 20100118, end: 20100125
  3. TRUVADA [Concomitant]
     Route: 048
     Dates: start: 20100108, end: 20100121
  4. EFAVIRENZ [Suspect]
     Indication: HIV INFECTION
     Route: 048
     Dates: start: 20100128, end: 20100207
  5. EPIVIR [Concomitant]
     Indication: HIV INFECTION
     Route: 048
     Dates: start: 20100128, end: 20100207
  6. NORVIR [Suspect]
     Indication: HIV INFECTION
     Route: 048
     Dates: start: 20100108, end: 20100121
  7. ZERIT [Concomitant]
     Indication: HIV INFECTION
     Route: 048
     Dates: start: 20100128, end: 20100207
  8. LOPERAMIDE HCL [Concomitant]
     Indication: DIARRHOEA
     Route: 048
     Dates: start: 20100108, end: 20100127
  9. PREZISTA [Suspect]
     Indication: HIV INFECTION
     Route: 048
     Dates: start: 20100108, end: 20100121
  10. TRUVADA [Suspect]
     Indication: HIV INFECTION
     Route: 048
     Dates: start: 20100208
  11. ISENTRESS [Concomitant]
     Indication: HIV INFECTION
     Route: 048
     Dates: start: 20100208
  12. METHYLPREDNISOLONE [Suspect]
     Indication: RASH
     Dates: start: 20100121, end: 20100121
  13. METHOXYPHENAMINE HYDROCHLORIDE [Concomitant]
     Indication: DRUG RASH WITH EOSINOPHILIA AND SYSTEMIC SYMPTOMS
     Route: 048
     Dates: start: 20100121, end: 20100121
  14. ZOSYN [Concomitant]
     Indication: SEPSIS
     Route: 042
     Dates: start: 20100128, end: 20100130

REACTIONS (5)
  - HEPATIC FUNCTION ABNORMAL [None]
  - PLATELET COUNT DECREASED [None]
  - SALMONELLA SEPSIS [None]
  - RASH [None]
  - DIARRHOEA [None]
